FAERS Safety Report 25995727 (Version 1)
Quarter: 2025Q4

REPORT INFORMATION
  Report Type: Spontaneous
  Country: US (occurrence: None)
  Receive Date: 20251104
  Receipt Date: 20251104
  Transmission Date: 20260118
  Serious: No
  Sender: FDA-CTU
  Company Number: None

PATIENT
  Sex: Male

DRUGS (1)
  1. ICATIBANT ACETATE [Suspect]
     Active Substance: ICATIBANT ACETATE
     Indication: Complement factor abnormal
     Dosage: 30 MG/ML AS NEEDED SUBCUTANEOUS
     Route: 058
     Dates: start: 20250618

REACTIONS (4)
  - Complement factor abnormal [None]
  - Condition aggravated [None]
  - Swollen tongue [None]
  - Weight decreased [None]
